FAERS Safety Report 8574256-8 (Version None)
Quarter: 2012Q3

REPORT INFORMATION
  Report Type: 
  Country: None (occurrence: None)
  Receive Date: 20120806
  Receipt Date: 20120727
  Transmission Date: 20120928
  Serious: Yes (Other)
  Sender: FDA-Public Use
  Company Number: DE-BAXTER-2012BAX013654

PATIENT
  Age: 36 Year
  Sex: Female

DRUGS (5)
  1. HYDROXYCHLOROQUINE SULFATE [Suspect]
     Indication: SYSTEMIC LUPUS ERYTHEMATOSUS
  2. AZATHIOPRINE SODIUM [Suspect]
     Indication: SYSTEMIC LUPUS ERYTHEMATOSUS
  3. KIOVIG [Suspect]
  4. KIOVIG [Suspect]
     Indication: SYSTEMIC LUPUS ERYTHEMATOSUS
     Route: 042
  5. METHOTREXATE [Suspect]
     Indication: SYSTEMIC LUPUS ERYTHEMATOSUS

REACTIONS (1)
  - DRUG INEFFECTIVE [None]
